FAERS Safety Report 11836476 (Version 1)
Quarter: 2015Q4

REPORT INFORMATION
  Report Type: Report from Study
  Country: DE (occurrence: DE)
  Receive Date: 20151215
  Receipt Date: 20151215
  Transmission Date: 20160305
  Serious: Yes (Hospitalization)
  Sender: FDA-Public Use
  Company Number: PHHO2015DE020362

PATIENT
  Age: 79 Year
  Sex: Male
  Weight: 62 kg

DRUGS (13)
  1. FUROSEMIDE. [Suspect]
     Active Substance: FUROSEMIDE
     Indication: DIURETIC THERAPY
     Dosage: 80 MG, UNK
     Route: 048
     Dates: start: 20151127, end: 20151129
  2. TORASEMIDE [Suspect]
     Active Substance: TORSEMIDE
     Indication: DIURETIC THERAPY
     Dosage: 30 MG, UNK
     Route: 048
     Dates: start: 20151204
  3. BLINDED RLX030 [Suspect]
     Active Substance: SERELAXIN
     Indication: CARDIAC FAILURE ACUTE
     Dosage: CODE NOT BROKEN
     Route: 042
     Dates: start: 20151123, end: 20151125
  4. XIPAMIDE [Suspect]
     Active Substance: XIPAMIDE
     Dosage: 20 MG, UNK
     Route: 048
     Dates: start: 20151202
  5. BLINDED NO TREATMENT RECEIVED [Suspect]
     Active Substance: INVESTIGATIONAL PRODUCT
     Indication: CARDIAC FAILURE ACUTE
     Dosage: CODE NOT BROKEN
     Route: 042
     Dates: start: 20151123, end: 20151125
  6. CLOPIDOGREL [Concomitant]
     Active Substance: CLOPIDOGREL BISULFATE
     Indication: PERIPHERAL ARTERIAL OCCLUSIVE DISEASE
     Dosage: 75 MG, (1-0-0) QD
     Route: 048
  7. BLINDED PLACEBO [Suspect]
     Active Substance: INVESTIGATIONAL PRODUCT
     Indication: CARDIAC FAILURE ACUTE
     Dosage: CODE NOT BROKEN
     Route: 042
     Dates: start: 20151123, end: 20151125
  8. MAGNESIUM [Concomitant]
     Active Substance: MAGNESIUM
     Indication: PROPHYLAXIS
     Dosage: 480 MG, (240 MG, 2-2-2) TID
     Route: 048
  9. BISOPROLOL [Concomitant]
     Active Substance: BISOPROLOL
     Indication: HYPERTENSION
     Dosage: 1.25 MG, (1-0-0) QD
     Route: 048
     Dates: start: 20151201
  10. XIPAMIDE [Suspect]
     Active Substance: XIPAMIDE
     Indication: DIURETIC THERAPY
     Dosage: 10 MG, UNK
     Route: 048
     Dates: start: 20151128, end: 20151129
  11. FUROSEMIDE. [Suspect]
     Active Substance: FUROSEMIDE
     Dosage: 80 MG, UNK
     Route: 048
     Dates: start: 20151201
  12. INSULIN [Concomitant]
     Active Substance: INSULIN NOS
     Indication: TYPE 1 DIABETES MELLITUS
     Dosage: (0-0-1) AS NEEDED
     Route: 048
  13. OPIPRAMOL [Concomitant]
     Active Substance: OPIPRAMOL
     Indication: PROPHYLAXIS
     Dosage: 50 MG, (0-0-1) QD
     Route: 048

REACTIONS (3)
  - Coronary artery disease [Recovering/Resolving]
  - Cardiac failure [Recovering/Resolving]
  - Acute kidney injury [Not Recovered/Not Resolved]

NARRATIVE: CASE EVENT DATE: 20151130
